FAERS Safety Report 4984585-2 (Version None)
Quarter: 2006Q2

REPORT INFORMATION
  Report Type: 
  Country: None (occurrence: None)
  Receive Date: 20060426
  Receipt Date: 20060426
  Transmission Date: 20061013
  Serious: Yes (Hospitalization)
  Sender: FDA-Public Use
  Company Number: None

PATIENT
  Age: 92 Year
  Sex: Male
  Weight: 90.2658 kg

DRUGS (4)
  1. ENALAPRIL MALEATE [Suspect]
     Indication: DIABETES MELLITUS
     Dosage: 5 MG DAILY
     Dates: start: 20050711, end: 20060202
  2. ENALAPRIL MALEATE [Suspect]
     Indication: HYPERTENSION
     Dosage: 5 MG DAILY
     Dates: start: 20050711, end: 20060202
  3. METOPROLOL TARTRATE [Suspect]
     Indication: CORONARY ARTERY DISEASE
     Dosage: 50 MG BID
     Dates: start: 20060131
  4. METOPROLOL TARTRATE [Suspect]
     Indication: HYPERTENSION
     Dosage: 50 MG BID
     Dates: start: 20060131

REACTIONS (3)
  - HYPOTENSION [None]
  - NEPHRITIS INTERSTITIAL [None]
  - RENAL FAILURE [None]
